FAERS Safety Report 8210352-2 (Version None)
Quarter: 2012Q1

REPORT INFORMATION
  Report Type: 
  Country: None (occurrence: None)
  Receive Date: 20120314
  Receipt Date: 20111010
  Transmission Date: 20120608
  Serious: No
  Sender: FDA-Public Use
  Company Number: US-ASTRAZENECA-2011SE46841

PATIENT
  Age: 78 Year
  Sex: Female
  Weight: 68 kg

DRUGS (9)
  1. REQUIP [Concomitant]
     Indication: RESTLESS LEGS SYNDROME
  2. HYDRALAZINE HCL [Concomitant]
     Indication: BLOOD PRESSURE ABNORMAL
  3. COUMADIN [Concomitant]
     Indication: ANTICOAGULANT THERAPY
  4. LASIX [Concomitant]
     Indication: CARDIAC DISORDER
  5. TOPROL-XL [Suspect]
     Indication: CARDIAC DISORDER
     Route: 048
     Dates: start: 20090101
  6. LEVOTHYROXINE SODIUM [Concomitant]
     Indication: THYROID HORMONE REPLACEMENT THERAPY
  7. CRESTOR [Concomitant]
     Indication: BLOOD CHOLESTEROL ABNORMAL
  8. IMDUR [Concomitant]
     Indication: CARDIAC DISORDER
  9. NORVASC [Concomitant]
     Indication: BLOOD PRESSURE ABNORMAL

REACTIONS (2)
  - DYSPHAGIA [None]
  - WRONG TECHNIQUE IN DRUG USAGE PROCESS [None]
